FAERS Safety Report 21530093 (Version 1)
Quarter: 2022Q4

REPORT INFORMATION
  Report Type: Spontaneous
  Country: GB (occurrence: GB)
  Receive Date: 20221031
  Receipt Date: 20221031
  Transmission Date: 20230113
  Serious: Yes (Other)
  Sender: FDA-Public Use
  Company Number: None

PATIENT
  Age: 64 Year
  Sex: Female
  Weight: 52 kg

DRUGS (9)
  1. AMLODIPINE [Suspect]
     Active Substance: AMLODIPINE BESYLATE
     Indication: Product used for unknown indication
     Dosage: THERAPY END DATE : NOT ASKED, UNIT DOSE : 5 MG
     Route: 065
     Dates: start: 20220930
  2. ALFACALCIDOL [Concomitant]
     Active Substance: ALFACALCIDOL
     Indication: Product used for unknown indication
     Dosage: 2 DOSAGE FORMS DAILY; UNIT DOSE : 2 DOSAGE FORMS, FREQUENCY ; 1 , FREQUENCY TIME : 1 DAYS,
     Dates: start: 20220225
  3. ASPIRIN [Concomitant]
     Active Substance: ASPIRIN
     Indication: Product used for unknown indication
     Dosage: 1 DOSAGE FORMS DAILY; UNIT DOSE : 1 DOSAGE FORMS, FREQUENCY ; 1 , FREQUENCY TIME : 1 DAYS
     Dates: start: 20220225
  4. BISOPROLOL [Concomitant]
     Active Substance: BISOPROLOL
     Indication: Product used for unknown indication
     Dosage: 1 DOSAGE FORMS DAILY; UNIT DOSE : 1 DOSAGE FORMS, FREQUENCY ; 1 , FREQUENCY TIME : 1 DAYS,
     Dates: start: 20221006
  5. BUPRENORPHINE [Concomitant]
     Active Substance: BUPRENORPHINE
     Indication: Product used for unknown indication
     Dosage: UNIT DOSE : 1 DOSAGE FORMS
     Dates: start: 20220225
  6. FAMOTIDINE [Concomitant]
     Active Substance: FAMOTIDINE
     Indication: Product used for unknown indication
     Dosage: 1 DOSAGE FORMS DAILY; AT NIGHT, UNIT DOSE : 1 DOSAGE FORMS, FREQUENCY ; 1 , FREQUENCY TIME : 1 DAYS,
     Dates: start: 20220719, end: 20220816
  7. FLECAINIDE ACETATE [Concomitant]
     Active Substance: FLECAINIDE ACETATE
     Indication: Product used for unknown indication
     Dosage: 2 DOSAGE FORMS DAILY; UNIT DOSE : 1 DOSAGE FORMS, FREQUENCY ; 2 , FREQUENCY TIME : 1 DAYS
     Dates: start: 20220225
  8. FLUCLOXACILLIN [Concomitant]
     Active Substance: FLUCLOXACILLIN
     Indication: Product used for unknown indication
     Dosage: 4 DOSAGE FORMS DAILY; UNIT DOSE : 1 DOSAGE FORMS, FREQUENCY ; 4 , FREQUENCY TIME : 1 DAYS, THERAPY D
     Dates: start: 20220912, end: 20220917
  9. OMEPRAZOLE [Concomitant]
     Active Substance: OMEPRAZOLE
     Indication: Product used for unknown indication
     Dosage: 1 DOSAGE FORMS DAILY; UNIT DOSE : 1 DOSAGE FORMS, FREQUENCY ; 1 , FREQUENCY TIME : 1 DAYS,
     Dates: start: 20220225

REACTIONS (2)
  - Diarrhoea [Recovered/Resolved]
  - Joint swelling [Recovered/Resolved]

NARRATIVE: CASE EVENT DATE: 20221011
